FAERS Safety Report 6773051-X (Version None)
Quarter: 2010Q2

REPORT INFORMATION
  Report Type: 
  Country: None (occurrence: None)
  Receive Date: 20100616
  Receipt Date: 20100604
  Transmission Date: 20101027
  Serious: Yes (Other)
  Sender: FDA-Public Use
  Company Number: US-PFIZER INC-2010070668

PATIENT
  Age: 27 Year
  Sex: Male
  Weight: 66 kg

DRUGS (2)
  1. CHANTIX [Suspect]
     Indication: SMOKING CESSATION THERAPY
     Dosage: UNK MG, UNK
     Route: 048
     Dates: start: 20100501, end: 20100101
  2. KLONOPIN [Concomitant]
     Dosage: UNK

REACTIONS (1)
  - SCHIZOPHRENIA [None]
